FAERS Safety Report 21299697 (Version 1)
Quarter: 2022Q3

REPORT INFORMATION
  Report Type: Spontaneous
  Country: NZ (occurrence: NZ)
  Receive Date: 20220906
  Receipt Date: 20220906
  Transmission Date: 20221026
  Serious: Yes (Other)
  Sender: FDA-Public Use
  Company Number: NZ-PFIZER INC-PV202200055144

PATIENT
  Age: 89 Year
  Sex: Female

DRUGS (4)
  1. PAXLOVID [Interacting]
     Active Substance: NIRMATRELVIR\RITONAVIR
     Indication: COVID-19 treatment
     Dosage: UNK
  2. FELODIPINE [Interacting]
     Active Substance: FELODIPINE
     Dosage: UNK
  3. DONEPEZIL [Concomitant]
     Active Substance: DONEPEZIL
     Dosage: UNK
  4. CANDESARTAN [Concomitant]
     Active Substance: CANDESARTAN
     Dosage: UNK

REACTIONS (5)
  - Drug interaction [Unknown]
  - Syncope [Unknown]
  - Bradycardia [Unknown]
  - Hypotension [Unknown]
  - Contraindicated product administered [Unknown]
